FAERS Safety Report 10060896 (Version 1)
Quarter: 2014Q2

REPORT INFORMATION
  Report Type: Spontaneous
  Country: US (occurrence: US)
  Receive Date: 20140404
  Receipt Date: 20140404
  Transmission Date: 20141212
  Serious: Yes (Other)
  Sender: FDA-Public Use
  Company Number: US-009507513-1404USA002823

PATIENT
  Sex: Female

DRUGS (1)
  1. OXYTROL FOR WOMEN [Suspect]
     Indication: HYPERTONIC BLADDER
     Dosage: UNK
     Route: 062
     Dates: start: 2014

REACTIONS (3)
  - Eye operation [Recovering/Resolving]
  - Retinal vein occlusion [Recovering/Resolving]
  - Visual acuity reduced [Recovering/Resolving]
